FAERS Safety Report 5123094-7 (Version None)
Quarter: 2006Q4

REPORT INFORMATION
  Report Type: 
  Country: None (occurrence: None)
  Receive Date: 20061009
  Receipt Date: 20060922
  Transmission Date: 20070319
  Serious: Yes (Hospitalization)
  Sender: FDA-Public Use
  Company Number: US-AVENTIS-200618091US

PATIENT
  Sex: Male

DRUGS (2)
  1. LANTUS [Suspect]
     Indication: DIABETES MELLITUS NON-INSULIN-DEPENDENT
     Dosage: DOSE: UNK
  2. LANTUS [Suspect]
     Dosage: DOSE: UNK

REACTIONS (7)
  - BLOOD GLUCOSE INCREASED [None]
  - DIABETIC KETOACIDOSIS [None]
  - HYPERGLYCAEMIA [None]
  - MALLORY-WEISS SYNDROME [None]
  - PHARMACEUTICAL PRODUCT COMPLAINT [None]
  - ULCER [None]
  - VOMITING [None]
